FAERS Safety Report 5423041-4 (Version None)
Quarter: 2007Q3

REPORT INFORMATION
  Report Type: 
  Country: None (occurrence: None)
  Receive Date: 20070822
  Receipt Date: 20070815
  Transmission Date: 20080115
  Serious: Yes (Hospitalization, Other)
  Sender: FDA-Public Use
  Company Number: US-PFIZER INC-2007067914

PATIENT
  Sex: Male
  Weight: 104.3 kg

DRUGS (2)
  1. BEXTRA [Suspect]
     Indication: PAIN IN EXTREMITY
  2. BEXTRA [Suspect]
     Indication: ARTHRALGIA

REACTIONS (1)
  - CEREBROVASCULAR ACCIDENT [None]
